FAERS Safety Report 12311751 (Version 1)
Quarter: 2016Q2

REPORT INFORMATION
  Report Type: Spontaneous
  Country: BE (occurrence: BE)
  Receive Date: 20160427
  Receipt Date: 20160427
  Transmission Date: 20160815
  Serious: Yes (Other)
  Sender: FDA-Public Use
  Company Number: BE-SA-2016SA079921

PATIENT
  Age: 45 Year
  Sex: Female

DRUGS (1)
  1. TERIFLUNOMIDE [Suspect]
     Active Substance: TERIFLUNOMIDE
     Route: 065
     Dates: start: 201506

REACTIONS (2)
  - Colitis ischaemic [Unknown]
  - Diarrhoea [Unknown]
